FAERS Safety Report 6862589-2 (Version None)
Quarter: 2010Q3

REPORT INFORMATION
  Report Type: 
  Country: None (occurrence: None)
  Receive Date: 20100721
  Receipt Date: 20100709
  Transmission Date: 20110219
  Serious: No
  Sender: FDA-Public Use
  Company Number: US-ELI_LILLY_AND_COMPANY-US201006005173

PATIENT
  Sex: Female
  Weight: 82.993 kg

DRUGS (8)
  1. FORTEO [Suspect]
     Indication: OSTEOPOROSIS
     Dosage: 20 UG, DAILY (1/D)
  2. WARFARIN SODIUM [Concomitant]
  3. TYLENOL (CAPLET) [Concomitant]
  4. MOBIC [Concomitant]
  5. NARDIL [Concomitant]
  6. XANAX [Concomitant]
  7. DIOVAN [Concomitant]
  8. VITAMINS WITH MINERALS [Concomitant]

REACTIONS (1)
  - NO ADVERSE EVENT [None]
